FAERS Safety Report 14120551 (Version 1)
Quarter: 2017Q4

REPORT INFORMATION
  Report Type: Report from Study
  Country: HU (occurrence: HU)
  Receive Date: 20171024
  Receipt Date: 20171024
  Transmission Date: 20180321
  Serious: Yes (Hospitalization, Other)
  Sender: FDA-Public Use
  Company Number: PHHY2017HU150952

PATIENT
  Age: 46 Year
  Sex: Male
  Weight: 72 kg

DRUGS (2)
  1. TAFINLAR [Suspect]
     Active Substance: DABRAFENIB MESYLATE
     Indication: MALIGNANT MELANOMA
     Dosage: 150 MG, BID
     Route: 048
     Dates: start: 20170408, end: 20170927
  2. MEKINIST [Suspect]
     Active Substance: TRAMETINIB DIMETHYL SULFOXIDE
     Indication: MALIGNANT MELANOMA
     Dosage: 2 MG, QD
     Route: 048
     Dates: start: 20170408, end: 20170927

REACTIONS (17)
  - Pyrexia [Unknown]
  - Throat irritation [Unknown]
  - Nausea [Unknown]
  - Fall [Recovering/Resolving]
  - Pancreatitis acute [Not Recovered/Not Resolved]
  - Loss of consciousness [Unknown]
  - Neutrophil count decreased [Unknown]
  - Syncope [Unknown]
  - Eructation [Unknown]
  - White blood cell count decreased [Unknown]
  - Viral infection [Recovered/Resolved]
  - Vomiting [Unknown]
  - Abdominal distension [Unknown]
  - Dizziness [Recovering/Resolving]
  - Malaise [Unknown]
  - Pain [Unknown]
  - Flatulence [Unknown]

NARRATIVE: CASE EVENT DATE: 20170825
